FAERS Safety Report 9858868 (Version 1)
Quarter: 2014Q1

REPORT INFORMATION
  Report Type: Spontaneous
  Country: US (occurrence: None)
  Receive Date: 20140129
  Receipt Date: 20140129
  Transmission Date: 20141002
  Serious: Yes (Other)
  Sender: FDA-Public Use
  Company Number: AUR-APL-2014-00542

PATIENT
  Sex: Male
  Weight: 79.82 kg

DRUGS (5)
  1. CITALOPRAM (CITALOPRAM) [Suspect]
     Indication: ANTIDEPRESSANT THERAPY
     Dosage: 40 MG (40 MG, 1 IN 1 D), UNKNOWN
  2. XANAX (ALPRAZOLAM) [Suspect]
     Indication: ERECTILE DYSFUNCTION
     Dates: end: 2013
  3. CAVERJECT [Suspect]
     Indication: ERECTILE DYSFUNCTION
     Dates: end: 2013
  4. VIAGRA (SILDENAFIL CITRATE) [Suspect]
     Indication: ERECTILE DYSFUNCTION
  5. CIALIS (TADALAFIL) [Suspect]
     Indication: ERECTILE DYSFUNCTION
     Dates: end: 2013

REACTIONS (1)
  - Bladder cancer [None]
